FAERS Safety Report 18032164 (Version 3)
Quarter: 2020Q3

REPORT INFORMATION
  Report Type: Spontaneous
  Country: GB (occurrence: GB)
  Receive Date: 20200716
  Receipt Date: 20200930
  Transmission Date: 20201103
  Serious: No
  Sender: FDA-Public Use
  Company Number: GB-JNJFOC-20200711946

PATIENT
  Sex: Female

DRUGS (3)
  1. DUROGESIC D?TRANS [Suspect]
     Active Substance: FENTANYL
     Indication: PRODUCT USED FOR UNKNOWN INDICATION
     Dosage: 12MICROGRAM/HOUR
     Route: 062
  2. DUROGESIC D?TRANS [Suspect]
     Active Substance: FENTANYL
  3. DUROGESIC D?TRANS [Suspect]
     Active Substance: FENTANYL

REACTIONS (2)
  - Product packaging quantity issue [Unknown]
  - Product dose omission issue [Unknown]
